FAERS Safety Report 10095539 (Version 1)
Quarter: 2014Q2

REPORT INFORMATION
  Report Type: Spontaneous
  Country: US (occurrence: US)
  Receive Date: 20140422
  Receipt Date: 20140422
  Transmission Date: 20141212
  Serious: Yes (Other)
  Sender: FDA-Public Use
  Company Number: US-AMGEN-USASP2014027815

PATIENT
  Age: 63 Year
  Sex: Female
  Weight: 86.17 kg

DRUGS (4)
  1. PROLIA [Suspect]
     Indication: OSTEOPOROSIS POSTMENOPAUSAL
     Dosage: UNK
     Route: 065
  2. CALCIUM [Concomitant]
  3. CRANBERRY JUICE [Concomitant]
     Indication: PROPHYLAXIS
  4. MAGNESIUM                          /00082501/ [Concomitant]
     Dosage: 500 MG, QD

REACTIONS (5)
  - Nephrolithiasis [Unknown]
  - Neck pain [Unknown]
  - Pollakiuria [Unknown]
  - Vitamin D decreased [Unknown]
  - Arthralgia [Unknown]
